FAERS Safety Report 4489348-2 (Version None)
Quarter: 2004Q4

REPORT INFORMATION
  Report Type: 
  Country: None (occurrence: None)
  Receive Date: 20041029
  Receipt Date: 20041021
  Transmission Date: 20050328
  Serious: Yes (Hospitalization)
  Sender: FDA-Public Use
  Company Number: US-MERCK-0410USA03407

PATIENT
  Age: 80 Year
  Sex: Female

DRUGS (3)
  1. VIOXX [Suspect]
     Indication: PAIN IN EXTREMITY
     Route: 048
     Dates: start: 20031017, end: 20031001
  2. ZANTAC [Concomitant]
     Route: 065
  3. FOSAMAX [Concomitant]
     Route: 048

REACTIONS (2)
  - MYOCARDIAL INFARCTION [None]
  - STOMACH DISCOMFORT [None]
